FAERS Safety Report 7586950-6 (Version None)
Quarter: 2011Q3

REPORT INFORMATION
  Report Type: 
  Country: None (occurrence: None)
  Receive Date: 20110701
  Receipt Date: 20110623
  Transmission Date: 20111222
  Serious: Yes (Hospitalization)
  Sender: FDA-Public Use
  Company Number: IT-UCBSA-036054

PATIENT
  Sex: Female

DRUGS (2)
  1. VIMPAT [Suspect]
     Indication: COMPLEX PARTIAL SEIZURES
     Dosage: 50 MG; 14 FILM COATED TABLET FOR USE
     Route: 048
     Dates: start: 20110501, end: 20110509
  2. TEGRETOL [Interacting]
     Indication: COMPLEX PARTIAL SEIZURES
     Dosage: 200 MG; 50 COATED TABLETS
     Route: 048
     Dates: start: 20110501, end: 20110509

REACTIONS (6)
  - DRUG INTERACTION [None]
  - NAUSEA [None]
  - VERTIGO [None]
  - DECREASED APPETITE [None]
  - ASTHENIA [None]
  - DRUG LEVEL INCREASED [None]
